FAERS Safety Report 11855763 (Version 1)
Quarter: 2015Q4

REPORT INFORMATION
  Report Type: Spontaneous
  Country: JP (occurrence: JP)
  Receive Date: 20151221
  Receipt Date: 20151221
  Transmission Date: 20160305
  Serious: Yes (Death, Hospitalization)
  Sender: FDA-Public Use
  Company Number: JP-ACTELION-A-CH2015-128786

PATIENT
  Age: 74 Year
  Sex: Female
  Weight: 32.5 kg

DRUGS (14)
  1. TRACLEER [Suspect]
     Active Substance: BOSENTAN
     Dosage: 62.5 MG, BID
     Route: 048
     Dates: start: 20151125, end: 20151126
  2. ZOPICLONE [Concomitant]
     Active Substance: ZOPICLONE
  3. BONALON [Concomitant]
     Active Substance: ALENDRONATE SODIUM
  4. FERROUS SULFATE [Concomitant]
     Active Substance: FERROUS SULFATE\FERROUS SULFATE, DRIED
  5. NEXIUM [Concomitant]
     Active Substance: ESOMEPRAZOLE MAGNESIUM
  6. CALFINA [Concomitant]
     Active Substance: ALFACALCIDOL
  7. TRACLEER [Suspect]
     Active Substance: BOSENTAN
     Indication: SCLERODERMA ASSOCIATED DIGITAL ULCER
     Dosage: 125 MG, BID
     Route: 048
     Dates: start: 20151120, end: 20151124
  8. TRACLEER [Suspect]
     Active Substance: BOSENTAN
     Dosage: 62.5 MG, BID
     Route: 048
     Dates: start: 201511, end: 20151119
  9. PROSTANDIN [Concomitant]
  10. PALUX [Concomitant]
     Active Substance: ALPROSTADIL
     Dosage: 5 MCG, UNK
     Route: 042
     Dates: start: 20151125, end: 20151126
  11. TOCOPHERYL NICOTINATE [Concomitant]
     Active Substance: TOCOPHERYL NICOTINATE, D-.ALPHA.
  12. ALPROSTADIL. [Concomitant]
     Active Substance: ALPROSTADIL
  13. SALINE ORAL OTC [Concomitant]
     Active Substance: SODIUM CHLORIDE
  14. CALONAL [Concomitant]
     Active Substance: ACETAMINOPHEN

REACTIONS (8)
  - Aspartate aminotransferase increased [Fatal]
  - Blood bilirubin increased [Fatal]
  - Blood creatine phosphokinase increased [Unknown]
  - Treatment noncompliance [Unknown]
  - Alanine aminotransferase increased [Fatal]
  - Acute hepatic failure [Fatal]
  - Extremity necrosis [Unknown]
  - Gamma-glutamyltransferase increased [Fatal]

NARRATIVE: CASE EVENT DATE: 20151120
